FAERS Safety Report 17717360 (Version 1)
Quarter: 2020Q2

REPORT INFORMATION
  Report Type: Spontaneous
  Country: JP (occurrence: JP)
  Receive Date: 20200428
  Receipt Date: 20200428
  Transmission Date: 20200714
  Serious: Yes (Hospitalization)
  Sender: FDA-Public Use
  Company Number: PHJP2018JP004449

PATIENT
  Age: 67 Year
  Sex: Female
  Weight: 54 kg

DRUGS (8)
  1. E KEPPRA [Suspect]
     Active Substance: LEVETIRACETAM
     Dosage: UNK
     Route: 048
     Dates: start: 201801
  2. MAGMITT [Concomitant]
     Active Substance: MAGNESIUM OXIDE
     Indication: CONSTIPATION
     Dosage: 600 MG
     Route: 065
     Dates: start: 20171230, end: 20180210
  3. PREDNISOLONE. [Concomitant]
     Active Substance: PREDNISOLONE
     Indication: DRUG ERUPTION
     Dosage: 40 MG
     Route: 048
     Dates: start: 20180119
  4. TEGRETOL [Suspect]
     Active Substance: CARBAMAZEPINE
     Indication: BRAIN ABSCESS
     Dosage: 200 MG, UNK
     Route: 048
     Dates: start: 20180122, end: 20180218
  5. LIPITOR [Suspect]
     Active Substance: ATORVASTATIN CALCIUM
     Indication: HYPERLIPIDAEMIA
     Dosage: 5 MG, UNK
     Route: 065
     Dates: start: 20171230, end: 20180210
  6. E KEPPRA [Suspect]
     Active Substance: LEVETIRACETAM
     Indication: BRAIN ABSCESS
     Dosage: UNK
     Route: 048
     Dates: start: 20171230, end: 20180122
  7. TAKEPRON [Concomitant]
     Active Substance: LANSOPRAZOLE
     Indication: CHRONIC GASTRITIS
     Dosage: 15 MG, UNK
     Route: 065
     Dates: start: 20171230, end: 20180210
  8. PREDNISOLONE. [Concomitant]
     Active Substance: PREDNISOLONE
     Indication: RASH
     Dosage: 15 MG
     Route: 048

REACTIONS (6)
  - Erythema multiforme [Recovered/Resolved]
  - Drug reaction with eosinophilia and systemic symptoms [Recovered/Resolved]
  - Eosinophil count increased [Recovered/Resolved]
  - Off label use [Recovered/Resolved]
  - Drug eruption [Recovered/Resolved]
  - Pyrexia [Recovered/Resolved]

NARRATIVE: CASE EVENT DATE: 20180122
